FAERS Safety Report 24026055 (Version 2)
Quarter: 2024Q3

REPORT INFORMATION
  Report Type: Report from Study
  Country: CN (occurrence: CN)
  Receive Date: 20240628
  Receipt Date: 20240710
  Transmission Date: 20241016
  Serious: No
  Sender: ROCHE
  Company Number: CN-ROCHE-3490526

PATIENT
  Age: 59 Year
  Sex: Female
  Weight: 60.6 kg

DRUGS (3)
  1. ALECTINIB [Suspect]
     Active Substance: ALECTINIB
     Indication: Lung cancer metastatic
     Route: 048
     Dates: start: 20211126
  2. SITAGLIPTIN PHOSPHATE [Concomitant]
     Active Substance: SITAGLIPTIN PHOSPHATE
     Route: 048
     Dates: start: 2020
  3. HEART TREASURE PILL [Concomitant]
     Route: 048
     Dates: start: 20230828

REACTIONS (1)
  - Asymptomatic bacteriuria [Recovered/Resolved]

NARRATIVE: CASE EVENT DATE: 20231024
